FAERS Safety Report 9035090 (Version 1)
Quarter: 2013Q1

REPORT INFORMATION
  Report Type: Report from Study
  Country: US (occurrence: US)
  Receive Date: 20130129
  Receipt Date: 20130129
  Transmission Date: 20140127
  Serious: Yes (Other)
  Sender: FDA-Public Use
  Company Number: US-ABBOTT-12P-163-0899455-00

PATIENT
  Age: 70 Year
  Sex: Female

DRUGS (3)
  1. HUMIRA 40 MG/0.8 ML PEN [Suspect]
     Indication: ANKYLOSING SPONDYLITIS
     Dates: start: 2006
  2. LEVOXYL [Concomitant]
     Indication: HYPOTHYROIDISM
     Dosage: DAILY DOSE: 75MCG
     Route: 048
     Dates: start: 1992
  3. AVAPRO [Concomitant]
     Indication: HYPERTENSION
     Dosage: DAILY DOSE: 75MG
     Route: 048
     Dates: start: 1997

REACTIONS (3)
  - Knee arthroplasty [Unknown]
  - Gastrointestinal tract irritation [Unknown]
  - Gastrooesophageal reflux disease [Unknown]
